FAERS Safety Report 18223023 (Version 1)
Quarter: 2020Q3

REPORT INFORMATION
  Report Type: Spontaneous
  Country: US (occurrence: US)
  Receive Date: 20200902
  Receipt Date: 20200902
  Transmission Date: 20201103
  Serious: No
  Sender: FDA-Public Use
  Company Number: US-PERRIGO-20US007715

PATIENT
  Age: 78 Year
  Sex: Male
  Weight: 65.31 kg

DRUGS (2)
  1. DICLOFENAC SODIUM. [Suspect]
     Active Substance: DICLOFENAC SODIUM
     Indication: BURSITIS
     Dosage: 4 G, TWICE
     Route: 061
     Dates: start: 20200520, end: 20200520
  2. DICLOFENAC SODIUM. [Suspect]
     Active Substance: DICLOFENAC SODIUM
     Dosage: 4 G, QID
     Route: 061
     Dates: start: 20200521, end: 20200525

REACTIONS (4)
  - Abdominal discomfort [Not Recovered/Not Resolved]
  - Drug ineffective for unapproved indication [Unknown]
  - Nausea [Not Recovered/Not Resolved]
  - Lethargy [Not Recovered/Not Resolved]

NARRATIVE: CASE EVENT DATE: 20200520
